FAERS Safety Report 19165569 (Version 5)
Quarter: 2023Q1

REPORT INFORMATION
  Report Type: Spontaneous
  Country: US (occurrence: US)
  Receive Date: 20210421
  Receipt Date: 20230210
  Transmission Date: 20230418
  Serious: Yes (Other)
  Sender: FDA-Public Use
  Company Number: US-PFIZER INC-2020144151

PATIENT
  Age: 70 Year
  Sex: Female

DRUGS (2)
  1. IBRANCE [Suspect]
     Active Substance: PALBOCICLIB
     Indication: Breast cancer female
     Dosage: 125 MG, DAILY
     Route: 048
  2. IBRANCE [Suspect]
     Active Substance: PALBOCICLIB
     Dosage: 100 MG

REACTIONS (6)
  - Cerebrovascular accident [Unknown]
  - Visual impairment [Unknown]
  - Feeling abnormal [Unknown]
  - Memory impairment [Unknown]
  - COVID-19 [Unknown]
  - Speech disorder [Unknown]

NARRATIVE: CASE EVENT DATE: 20200101
